FAERS Safety Report 4962966-0 (Version None)
Quarter: 2006Q2

REPORT INFORMATION
  Report Type: 
  Country: None (occurrence: None)
  Receive Date: 20060405
  Receipt Date: 20060327
  Transmission Date: 20061013
  Serious: Yes (Hospitalization)
  Sender: FDA-Public Use
  Company Number: US-JNJFOC-20060307221

PATIENT
  Sex: Female
  Weight: 57.61 kg

DRUGS (6)
  1. DURAGESIC-100 [Suspect]
     Route: 062
  2. PERSANTINE [Concomitant]
     Route: 048
  3. AMBIEN [Concomitant]
     Indication: INSOMNIA
  4. VICODIN [Concomitant]
  5. VICODIN [Concomitant]
     Indication: PAIN
  6. EFFEXOR XR [Concomitant]
     Indication: DEPRESSION
     Route: 048

REACTIONS (1)
  - PNEUMONIA [None]
